FAERS Safety Report 7813780-X (Version None)
Quarter: 2011Q4

REPORT INFORMATION
  Report Type: 
  Country: None (occurrence: None)
  Receive Date: 20111014
  Receipt Date: 20111003
  Transmission Date: 20120403
  Serious: Yes (Hospitalization)
  Sender: FDA-Public Use
  Company Number: IT-JNJFOC-20111002079

PATIENT
  Age: 32 Year
  Sex: Female
  Weight: 63 kg

DRUGS (11)
  1. CLOBETASOL PROPIONATE [Concomitant]
     Indication: ERYTHEMA NODOSUM
     Route: 065
     Dates: start: 20110707, end: 20110909
  2. REMICADE [Suspect]
     Route: 042
     Dates: start: 20110707
  3. ANTIHISTAMINES [Concomitant]
     Indication: PREMEDICATION
     Route: 065
  4. MESALAMINE [Concomitant]
     Indication: COLITIS ULCERATIVE
     Route: 048
     Dates: start: 20080101
  5. CHLORPHENIRAMINE MALEATE [Concomitant]
     Indication: ANAPHYLACTIC REACTION
     Route: 042
     Dates: start: 20110707, end: 20110919
  6. REMICADE [Suspect]
     Route: 042
     Dates: start: 20110719
  7. STEROIDS NOS [Concomitant]
     Indication: PREMEDICATION
     Route: 065
  8. REMICADE [Suspect]
     Indication: COLITIS ULCERATIVE
     Route: 042
     Dates: start: 20110909
  9. OMEPRAZOLE [Concomitant]
     Indication: PEPTIC ULCER
     Route: 048
     Dates: start: 20100101
  10. METHYLPREDNISOLONE [Concomitant]
     Indication: ANAPHYLACTIC REACTION
     Route: 042
     Dates: start: 20110707, end: 20110919
  11. REMICADE [Suspect]
     Route: 042
     Dates: start: 20110919, end: 20110919

REACTIONS (7)
  - CHEST PAIN [None]
  - FEELING COLD [None]
  - HYPERPYREXIA [None]
  - NAUSEA [None]
  - HOSPITALISATION [None]
  - RETCHING [None]
  - INFUSION RELATED REACTION [None]
